FAERS Safety Report 9664826 (Version 1)
Quarter: 2013Q4

REPORT INFORMATION
  Report Type: Spontaneous
  Country: GB (occurrence: GB)
  Receive Date: 20131101
  Receipt Date: 20131101
  Transmission Date: 20140711
  Serious: Yes (Hospitalization)
  Sender: FDA-Public Use
  Company Number: GB-WATSON-2013-20104

PATIENT
  Age: 87 Year
  Sex: Female
  Weight: 53 kg

DRUGS (17)
  1. PREDNISOLONE (UNKNOWN) [Suspect]
     Indication: POLYMYALGIA RHEUMATICA
     Dosage: 3 MG, DAILY, STARTED 10 YEARS AGO. ONGOING
     Route: 048
  2. XARELTO [Suspect]
     Indication: CEREBROVASCULAR ACCIDENT PROPHYLAXIS
     Dosage: 15 MG, DAILY
     Route: 048
     Dates: start: 201306, end: 20130925
  3. PROCHLORPERAZINE [Concomitant]
     Indication: DIZZINESS
     Dosage: 5 MG DAILY, ONE TO BE TAKEN TWICE DAILY IF REQUIRED.
     Route: 065
  4. BISOPROLOL [Concomitant]
     Indication: PRODUCT USED FOR UNKNOWN INDICATION
     Dosage: 2.5 MG, DAILY
     Route: 065
  5. CLOPIDOGREL [Concomitant]
     Indication: PRODUCT USED FOR UNKNOWN INDICATION
     Dosage: 75 MG, DAILY
     Route: 065
  6. CHOLECALCIFEROL [Concomitant]
     Indication: PRODUCT USED FOR UNKNOWN INDICATION
     Dosage: 2 DF BID,
     Route: 065
  7. CALCIUM CARBONATE [Concomitant]
     Indication: PRODUCT USED FOR UNKNOWN INDICATION
     Dosage: 2 DF BID,
     Route: 065
  8. DIGOXIN [Concomitant]
     Indication: PRODUCT USED FOR UNKNOWN INDICATION
     Dosage: 125 MICROGRAMS DAILY,
     Route: 065
  9. FUROSEMIDE [Concomitant]
     Indication: PRODUCT USED FOR UNKNOWN INDICATION
     Dosage: 20 MG DAILY. ONE IN THE MORNING.
     Route: 065
  10. LEVOTHYROXINE SODIUM [Concomitant]
     Indication: PRODUCT USED FOR UNKNOWN INDICATION
     Dosage: 100 MICROGRAMS DAILY
     Route: 065
  11. LEVOTHYROXINE SODIUM [Concomitant]
     Dosage: 25 MICROGRAMS DAILY
     Route: 065
  12. LOPERAMIDE [Concomitant]
     Indication: PRODUCT USED FOR UNKNOWN INDICATION
     Dosage: 2 MG BID.
     Route: 065
  13. PARACETAMOL [Concomitant]
     Indication: PRODUCT USED FOR UNKNOWN INDICATION
     Dosage: 1000 MG DAILY.
     Route: 065
  14. PREDNISOLONE [Concomitant]
     Indication: PRODUCT USED FOR UNKNOWN INDICATION
     Dosage: 1 MG TID.
     Route: 065
  15. SIMVASTATIN [Concomitant]
     Indication: PRODUCT USED FOR UNKNOWN INDICATION
     Dosage: 20 MG DAILY. ONE AT TEATIME.
     Route: 065
  16. TRAMADOL [Concomitant]
     Indication: PRODUCT USED FOR UNKNOWN INDICATION
     Dosage: 50 MG TID
     Route: 065
  17. ALENDRONIC ACID [Concomitant]
     Indication: PRODUCT USED FOR UNKNOWN INDICATION
     Dosage: 70 MG 1/WEEK.
     Route: 065

REACTIONS (2)
  - Lower gastrointestinal haemorrhage [Recovering/Resolving]
  - Melaena [Recovering/Resolving]
